FAERS Safety Report 5649140-X (Version None)
Quarter: 2008Q1

REPORT INFORMATION
  Report Type: 
  Country: None (occurrence: None)
  Receive Date: 20080304
  Receipt Date: 20080225
  Transmission Date: 20080703
  Serious: Yes (Hospitalization, Other)
  Sender: FDA-Public Use
  Company Number: US-ELI_LILLY_AND_COMPANY-US200802005606

PATIENT
  Age: 81 Year
  Sex: Female

DRUGS (2)
  1. FORTEO [Suspect]
     Indication: OSTEOPOROSIS
     Dosage: UNK, UNK
     Dates: start: 20080116, end: 20080201
  2. CALCIUM WITH VITAMIN D /00944201/ [Concomitant]
     Indication: OSTEOPOROSIS

REACTIONS (2)
  - BLOOD PRESSURE DECREASED [None]
  - SPINAL OPERATION [None]
